FAERS Safety Report 12104348 (Version 3)
Quarter: 2016Q2

REPORT INFORMATION
  Report Type: Spontaneous
  Country: US (occurrence: US)
  Receive Date: 20160223
  Receipt Date: 20160609
  Transmission Date: 20160815
  Serious: Yes (Other)
  Sender: FDA-Public Use
  Company Number: US-TEVA-636141USA

PATIENT
  Age: 44 Year
  Sex: Male

DRUGS (1)
  1. ZECUITY [Suspect]
     Active Substance: SUMATRIPTAN SUCCINATE
     Indication: HEADACHE
     Dosage: 6.5 MG / 4 HOURS
     Route: 062
     Dates: start: 20160209

REACTIONS (13)
  - Dermatitis contact [Unknown]
  - Hypersensitivity [Unknown]
  - Application site erythema [Recovered/Resolved]
  - Sunburn [Unknown]
  - Application site swelling [Unknown]
  - Device leakage [Unknown]
  - Application site urticaria [Unknown]
  - Drug effect incomplete [Unknown]
  - Chemical injury [Unknown]
  - Application site irritation [Unknown]
  - Rash [Recovered/Resolved]
  - Application site exfoliation [Recovered/Resolved]
  - Product adhesion issue [Unknown]

NARRATIVE: CASE EVENT DATE: 201602
